FAERS Safety Report 6271093-4 (Version None)
Quarter: 2009Q3

REPORT INFORMATION
  Report Type: 
  Country: None (occurrence: None)
  Receive Date: 20090716
  Receipt Date: 20090709
  Transmission Date: 20100115
  Serious: Yes (Life-Threatening)
  Sender: FDA-Public Use
  Company Number: US-MERCK-0906USA02940

PATIENT
  Age: 51 Year
  Sex: Female
  Weight: 85 kg

DRUGS (1)
  1. IVEMEND [Suspect]
     Indication: PROPHYLAXIS OF NAUSEA AND VOMITING
     Route: 051
     Dates: start: 20090609, end: 20090609

REACTIONS (7)
  - CHEST PAIN [None]
  - DYSPNOEA [None]
  - FLUSHING [None]
  - HYPERSENSITIVITY [None]
  - HYPOAESTHESIA FACIAL [None]
  - NAUSEA [None]
  - OXYGEN SATURATION DECREASED [None]
